FAERS Safety Report 11865908 (Version 6)
Quarter: 2016Q1

REPORT INFORMATION
  Report Type: Spontaneous
  Country: JP (occurrence: JP)
  Receive Date: 20151223
  Receipt Date: 20160323
  Transmission Date: 20160526
  Serious: Yes (Hospitalization)
  Sender: FDA-Public Use
  Company Number: JP-ABBVIE-15P-087-1525140-00

PATIENT
  Age: 51 Year
  Sex: Male
  Weight: 71 kg

DRUGS (1)
  1. VIEKIRAX [Suspect]
     Active Substance: OMBITASVIR\PARITAPREVIR\RITONAVIR
     Indication: CHRONIC HEPATITIS C
     Route: 048
     Dates: start: 20151217, end: 20151218

REACTIONS (8)
  - Blood bilirubin increased [Recovering/Resolving]
  - Feeling cold [Recovering/Resolving]
  - Blood creatine phosphokinase increased [Not Recovered/Not Resolved]
  - Myalgia [Unknown]
  - Hot flush [Recovering/Resolving]
  - Malaise [Recovering/Resolving]
  - Headache [Recovering/Resolving]
  - Nausea [Recovering/Resolving]

NARRATIVE: CASE EVENT DATE: 20151217
